FAERS Safety Report 23369427 (Version 1)
Quarter: 2024Q1

REPORT INFORMATION
  Report Type: Spontaneous
  Country: CA (occurrence: CA)
  Receive Date: 20240105
  Receipt Date: 20240105
  Transmission Date: 20240409
  Serious: Yes (Death)
  Sender: FDA-Public Use
  Company Number: CA-SUN PHARMACEUTICAL INDUSTRIES LTD-2023R1-426157

PATIENT
  Age: 48 Year
  Sex: Female

DRUGS (3)
  1. TOPIRAMATE [Suspect]
     Active Substance: TOPIRAMATE
     Indication: Optic ischaemic neuropathy
     Dosage: UNK
     Route: 065
  2. DEXAMETHASONE [Suspect]
     Active Substance: DEXAMETHASONE
     Indication: Optic ischaemic neuropathy
     Dosage: UNK
     Route: 065
  3. METHAZOLAMIDE [Suspect]
     Active Substance: METHAZOLAMIDE
     Indication: Optic ischaemic neuropathy
     Dosage: UNK
     Route: 065

REACTIONS (1)
  - Condition aggravated [Fatal]
